FAERS Safety Report 9828595 (Version 1)
Quarter: 2014Q1

REPORT INFORMATION
  Report Type: Spontaneous
  Country: US (occurrence: US)
  Receive Date: 20140117
  Receipt Date: 20140117
  Transmission Date: 20141002
  Serious: Yes (Death, Hospitalization)
  Sender: FDA-Public Use
  Company Number: US-ACTELION-A-US2014-93375

PATIENT
  Age: 57 Year
  Sex: Male

DRUGS (6)
  1. TRACLEER [Suspect]
     Indication: PULMONARY HYPERTENSION
     Dosage: UNK
     Route: 048
     Dates: end: 20131215
  2. ADCIRCA [Concomitant]
  3. TYVASO [Concomitant]
  4. ASA [Concomitant]
     Dosage: 81 MG, UNK
  5. DIGOXIN [Concomitant]
     Dosage: 0.125 MG, UNK
  6. LASIX [Concomitant]
     Dosage: 20 MG, UNK

REACTIONS (4)
  - Respiratory failure [Fatal]
  - Intestinal obstruction [Unknown]
  - Blood pressure decreased [Unknown]
  - Dyspnoea [Unknown]
